FAERS Safety Report 24627043 (Version 2)
Quarter: 2024Q4

REPORT INFORMATION
  Report Type: Spontaneous
  Country: NL (occurrence: NL)
  Receive Date: 20241115
  Receipt Date: 20241126
  Transmission Date: 20250115
  Serious: Yes (Other)
  Sender: CELLTRION
  Company Number: NL-CELLTRION INC.-2024NL028044

PATIENT

DRUGS (2)
  1. YUFLYMA [Suspect]
     Active Substance: ADALIMUMAB-AATY
     Indication: Colitis ulcerative
     Dosage: 40 MG, Q2WEEKS
     Dates: start: 202406
  2. YUFLYMA [Suspect]
     Active Substance: ADALIMUMAB-AATY
     Dosage: 40 MG, 1/WEEK
     Dates: start: 20240919

REACTIONS (9)
  - Speech disorder [Unknown]
  - Dizziness [Unknown]
  - Hypertension [Unknown]
  - Palpitations [Unknown]
  - Drug level decreased [Unknown]
  - Eye inflammation [Unknown]
  - Contusion [Unknown]
  - Furuncle [Unknown]
  - Intentional dose omission [Unknown]

NARRATIVE: CASE EVENT DATE: 20240601
